FAERS Safety Report 16941541 (Version 1)
Quarter: 2019Q4

REPORT INFORMATION
  Report Type: Spontaneous
  Country: US (occurrence: US)
  Receive Date: 20191020
  Receipt Date: 20191020
  Transmission Date: 20200122
  Serious: Yes (Disabling)
  Sender: FDA-Public Use
  Company Number: None

PATIENT
  Sex: Female

DRUGS (5)
  1. CIPRO [Suspect]
     Active Substance: CIPROFLOXACIN HYDROCHLORIDE
     Indication: TOOTH INFECTION
     Route: 048
     Dates: start: 20181101, end: 20181122
  2. LANTUS [Concomitant]
     Active Substance: INSULIN GLARGINE
  3. CARVEDILOL. [Concomitant]
     Active Substance: CARVEDILOL
  4. NOVOLOG [Concomitant]
     Active Substance: INSULIN ASPART
  5. MAGNESIUM [Concomitant]
     Active Substance: MAGNESIUM

REACTIONS (10)
  - Headache [None]
  - Paraesthesia [None]
  - Suicidal ideation [None]
  - Myalgia [None]
  - Musculoskeletal stiffness [None]
  - Tendon disorder [None]
  - Gait disturbance [None]
  - Depression [None]
  - Joint noise [None]
  - Tendon pain [None]
